FAERS Safety Report 4801713-X (Version None)
Quarter: 2005Q4

REPORT INFORMATION
  Report Type: 
  Country: None (occurrence: None)
  Receive Date: 20051013
  Receipt Date: 20051013
  Transmission Date: 20060501
  Serious: Yes (Death)
  Sender: FDA-Public Use
  Company Number: None

PATIENT
  Age: 48 Year
  Sex: Male

DRUGS (9)
  1. RITUXAN 795 MG IV 10/03/05 [Suspect]
     Dosage: 795 MG IV
     Route: 042
     Dates: start: 20051003
  2. CYTOXAN [Suspect]
     Dosage: 1589MG IV
     Route: 042
     Dates: start: 20051007
  3. DOXORUBICIN 106 MG IV 10/3/2005 [Suspect]
     Dosage: 106 MG IV
     Route: 042
     Dates: start: 20051003
  4. VINCRISTINE [Suspect]
     Dosage: 2.0 MG IV
     Route: 042
     Dates: start: 20051004
  5. PREDNISONE [Suspect]
     Dosage: 100MG PO X 5
     Route: 048
     Dates: start: 20051005, end: 20051010
  6. VELCADE [Suspect]
     Dosage: 2.75MG IV
     Route: 042
     Dates: start: 20051003, end: 20051006
  7. REGLAN [Concomitant]
  8. BACTRIM DS [Concomitant]
  9. PHENERGAN [Concomitant]

REACTIONS (14)
  - ACIDOSIS [None]
  - ANAEMIA [None]
  - BRADYCARDIA [None]
  - GENERAL PHYSICAL HEALTH DETERIORATION [None]
  - HAEMORRHAGE [None]
  - LOSS OF CONSCIOUSNESS [None]
  - MALAISE [None]
  - MOUTH HAEMORRHAGE [None]
  - MYOCARDIAL INFARCTION [None]
  - PUPIL FIXED [None]
  - RESPIRATORY ARREST [None]
  - RESPIRATORY DISTRESS [None]
  - THROMBOCYTOPENIA [None]
  - WHITE BLOOD CELL COUNT INCREASED [None]
